FAERS Safety Report 9097206 (Version 2)
Quarter: 2013Q1

REPORT INFORMATION
  Report Type: Spontaneous
  Country: US (occurrence: US)
  Receive Date: 20130125
  Receipt Date: 20130125
  Transmission Date: 20140127
  Serious: No
  Sender: FDA-Public Use
  Company Number: US-ASTRAZENECA-2011SE53978

PATIENT
  Age: 88 Year
  Sex: Female

DRUGS (3)
  1. NEXIUM [Suspect]
     Route: 048
  2. COUGH SYRUP [Concomitant]
  3. DELSYM [Concomitant]

REACTIONS (3)
  - Allergic cough [Unknown]
  - Rhinorrhoea [Unknown]
  - Cough [Unknown]
